FAERS Safety Report 6903032-4 (Version None)
Quarter: 2010Q3

REPORT INFORMATION
  Report Type: 
  Country: None (occurrence: None)
  Receive Date: 20100803
  Receipt Date: 20080708
  Transmission Date: 20110219
  Serious: No
  Sender: FDA-Public Use
  Company Number: US-PFIZER INC-2008057232

PATIENT
  Sex: Male
  Weight: 95.4 kg

DRUGS (2)
  1. LYRICA [Suspect]
     Indication: DIABETIC NEUROPATHY
     Dates: start: 20060101
  2. AVANDIA [Concomitant]

REACTIONS (1)
  - DIARRHOEA [None]
